FAERS Safety Report 15105657 (Version 2)
Quarter: 2018Q3

REPORT INFORMATION
  Report Type: Spontaneous
  Country: US (occurrence: US)
  Receive Date: 20180704
  Receipt Date: 20180710
  Transmission Date: 20181010
  Serious: Yes (Other)
  Sender: FDA-Public Use
  Company Number: US-ROCHE-2145604

PATIENT
  Sex: Female
  Weight: 56.75 kg

DRUGS (1)
  1. BONIVA [Suspect]
     Active Substance: IBANDRONATE SODIUM
     Indication: OSTEOPOROSIS
     Dosage: ONGOING: NO
     Route: 048
     Dates: end: 201804

REACTIONS (6)
  - Myalgia [Unknown]
  - Fatigue [Unknown]
  - Bone pain [Unknown]
  - Breast cancer [Unknown]
  - Spinal fracture [Unknown]
  - Pain [Unknown]

NARRATIVE: CASE EVENT DATE: 2009
